FAERS Safety Report 22859998 (Version 2)
Quarter: 2023Q4

REPORT INFORMATION
  Report Type: Spontaneous
  Country: BR (occurrence: BR)
  Receive Date: 20230824
  Receipt Date: 20231124
  Transmission Date: 20240110
  Serious: Yes (Hospitalization, Other)
  Sender: FDA-Public Use
  Company Number: BR-TAKEDA-2023TUS077142

PATIENT
  Age: 60 Year
  Sex: Female
  Weight: 73 kg

DRUGS (3)
  1. AGRYLIN [Suspect]
     Active Substance: ANAGRELIDE HYDROCHLORIDE
     Indication: Essential thrombocythaemia
     Dosage: 1 DOSAGE FORM, Q12H
     Route: 048
     Dates: start: 20230522
  2. AGRYLIN [Suspect]
     Active Substance: ANAGRELIDE HYDROCHLORIDE
     Dosage: 1 DOSAGE FORM, Q12H
     Route: 048
  3. NILOTINIB [Concomitant]
     Active Substance: NILOTINIB
     Indication: Chronic myeloid leukaemia
     Dosage: 2 DOSAGE FORM, BID
     Route: 065

REACTIONS (19)
  - Vein rupture [Recovered/Resolved]
  - Drug hypersensitivity [Recovered/Resolved]
  - Chronic myeloid leukaemia [Recovered/Resolved]
  - Blood blister [Recovered/Resolved]
  - Rash macular [Recovered/Resolved]
  - Contusion [Recovered/Resolved]
  - Vasculitis [Recovered/Resolved]
  - Nodule [Recovered/Resolved]
  - Inflammation [Recovered/Resolved]
  - Prescribed underdose [Recovered/Resolved]
  - Insurance issue [Recovered/Resolved]
  - Petechiae [Recovered/Resolved]
  - Nosocomial infection [Recovered/Resolved]
  - Staphylococcal infection [Recovered/Resolved]
  - Asthenia [Recovered/Resolved]
  - Palpitations [Recovered/Resolved]
  - Incorrect dose administered [Recovered/Resolved]
  - Inappropriate schedule of product administration [Recovered/Resolved]
  - Product use issue [Recovered/Resolved]

NARRATIVE: CASE EVENT DATE: 20230501
